FAERS Safety Report 5691309-2 (Version None)
Quarter: 2008Q2

REPORT INFORMATION
  Report Type: 
  Country: None (occurrence: None)
  Receive Date: 20080402
  Receipt Date: 20080326
  Transmission Date: 20081010
  Serious: Yes (Death, Other)
  Sender: FDA-Public Use
  Company Number: JP-BRISTOL-MYERS SQUIBB COMPANY-14131957

PATIENT
  Age: 68 Year
  Sex: Male

DRUGS (3)
  1. PARAPLATIN [Suspect]
     Indication: METASTASES TO LYMPH NODES
     Route: 041
     Dates: start: 20060201
  2. RADIOTHERAPY [Suspect]
  3. TAXOTERE [Concomitant]
     Indication: METASTASES TO LYMPH NODES
     Route: 042
     Dates: start: 20060201

REACTIONS (2)
  - METASTATIC NEOPLASM [None]
  - NON-HODGKIN'S LYMPHOMA [None]
